FAERS Safety Report 6641665-3 (Version None)
Quarter: 2010Q1

REPORT INFORMATION
  Report Type: 
  Country: None (occurrence: None)
  Receive Date: 20100316
  Receipt Date: 20100303
  Transmission Date: 20100710
  Serious: Yes (Hospitalization)
  Sender: FDA-Public Use
  Company Number: 232305J10USA

PATIENT
  Age: 38 Year
  Sex: Female

DRUGS (6)
  1. REBIF [Suspect]
     Indication: MULTIPLE SCLEROSIS
     Dosage: 44 MCG, 3 IN 1 WEEKS, SUBCUTANEOUS
     Route: 058
     Dates: start: 20090524
  2. STEROIDS (CORTICOSTEROIDS) [Concomitant]
  3. TYLENOL [Concomitant]
  4. BENADRYL [Concomitant]
  5. CITALOPRAM HYDROBROMIDE [Concomitant]
  6. SIMVASTATIN [Concomitant]

REACTIONS (4)
  - CERVIX DISORDER [None]
  - CONDITION AGGRAVATED [None]
  - PRECANCEROUS CELLS PRESENT [None]
  - UTERINE DISORDER [None]
